FAERS Safety Report 23785982 (Version 2)
Quarter: 2024Q2

REPORT INFORMATION
  Report Type: Spontaneous
  Country: JP (occurrence: JP)
  Receive Date: 20240426
  Receipt Date: 20240521
  Transmission Date: 20240716
  Serious: Yes (Other)
  Sender: FDA-Public Use
  Company Number: JP-SA-2024SA122625

PATIENT
  Age: 78 Year
  Sex: Male

DRUGS (1)
  1. TAXOTERE [Suspect]
     Active Substance: DOCETAXEL
     Indication: Extramammary Paget^s disease
     Dosage: UNK
     Route: 041

REACTIONS (5)
  - Pneumonia aspiration [Unknown]
  - Myelosuppression [Unknown]
  - Renal impairment [Unknown]
  - Ileus [Unknown]
  - Off label use [Unknown]
